FAERS Safety Report 14179958 (Version 1)
Quarter: 2017Q4

REPORT INFORMATION
  Report Type: Spontaneous
  Country: US (occurrence: US)
  Receive Date: 20171110
  Receipt Date: 20171110
  Transmission Date: 20180321
  Serious: No
  Sender: FDA-Public Use
  Company Number: US-BAUSCH-BL-2017-026755

PATIENT
  Age: 71 Year
  Sex: Female
  Weight: 56.75 kg

DRUGS (3)
  1. REFRESH PM PRESERVATIVE FREE [Concomitant]
     Indication: DRY EYE
     Dosage: NIGHT TIME, BEGINNING OF SEP 2017 OR END OF AUG 2017,
     Dates: start: 2017
  2. LATANOPROST OPHTHALMIC SOLUTION 0.005% [Suspect]
     Active Substance: LATANOPROST
     Indication: INTRACRANIAL PRESSURE INCREASED
     Dosage: 1 DROP IN THE RIGHT EYE ONCE NIGHTLY
     Route: 047
     Dates: start: 20170808
  3. REFRESH PLUS PRESERVATIVE FREE [Concomitant]
     Indication: DRY EYE
     Dosage: 5-6 TIMES IN A DAY IN EACH EYE
     Dates: start: 201706

REACTIONS (1)
  - Visual impairment [Not Recovered/Not Resolved]

NARRATIVE: CASE EVENT DATE: 20170830
